FAERS Safety Report 7490296-4 (Version None)
Quarter: 2011Q2

REPORT INFORMATION
  Report Type: 
  Country: None (occurrence: None)
  Receive Date: 20110519
  Receipt Date: 20101013
  Transmission Date: 20111010
  Serious: Yes (Other)
  Sender: FDA-Public Use
  Company Number: US-BRISTOL-MYERS SQUIBB COMPANY-15283799

PATIENT
  Age: 27 Year
  Sex: Female

DRUGS (4)
  1. BARACLUDE [Suspect]
     Dosage: INTERRUPTED IN SEPTEMBER 2007 RESTARTED IN MAY/2008 DOSE INCREASED TO 1MG IN DEC08
     Dates: start: 20070701
  2. DESOGESTREL AND ETHINYL ESTRADIOL [Concomitant]
  3. ZOLOFT [Concomitant]
  4. MULTI-VITAMIN [Concomitant]

REACTIONS (3)
  - DRUG TOLERANCE [None]
  - PREGNANCY [None]
  - LIVE BIRTH [None]
